FAERS Safety Report 17107657 (Version 1)
Quarter: 2019Q4

REPORT INFORMATION
  Report Type: Report from Study
  Country: None (occurrence: JP)
  Receive Date: 20191203
  Receipt Date: 20191203
  Transmission Date: 20200122
  Serious: Yes (Hospitalization)
  Sender: FDA-Public Use
  Company Number: JP-ABBVIE-19P-087-2712837-00

PATIENT
  Age: 39 Year
  Sex: Male

DRUGS (11)
  1. PREDNISOLONE. [Suspect]
     Active Substance: PREDNISOLONE
     Indication: DERMATITIS ATOPIC
     Route: 061
     Dates: start: 20190305, end: 20190311
  2. TACROLIMUS. [Suspect]
     Active Substance: TACROLIMUS
     Route: 061
     Dates: start: 20190315
  3. FEXOFENADINE HYDROCHLORIDE. [Concomitant]
     Active Substance: FEXOFENADINE HYDROCHLORIDE
     Indication: DERMATITIS ATOPIC
     Route: 048
     Dates: start: 20180511
  4. UPADACITINIB [Suspect]
     Active Substance: UPADACITINIB
     Indication: DERMATITIS ATOPIC
     Route: 048
     Dates: start: 20190212, end: 20190318
  5. FLUOCINOLONE ACETONIDE. [Suspect]
     Active Substance: FLUOCINOLONE ACETONIDE
     Indication: DERMATITIS ATOPIC
     Route: 061
     Dates: start: 20190212, end: 20190304
  6. HEPARINOID [Concomitant]
     Active Substance: CHONDROITIN SULFATE (BOVINE)
     Indication: DERMATITIS ATOPIC
     Route: 061
     Dates: start: 20180420
  7. TACROLIMUS. [Suspect]
     Active Substance: TACROLIMUS
     Route: 061
     Dates: start: 20190305, end: 20190311
  8. PROPETO [Concomitant]
     Active Substance: PETROLATUM
     Indication: DERMATITIS ATOPIC
     Route: 061
     Dates: start: 20190125
  9. TACROLIMUS. [Suspect]
     Active Substance: TACROLIMUS
     Indication: DERMATITIS ATOPIC
     Route: 061
     Dates: start: 20190212, end: 20190304
  10. UPADACITINIB [Suspect]
     Active Substance: UPADACITINIB
     Route: 048
     Dates: start: 20190325
  11. FLUOCINOLONE ACETONIDE. [Suspect]
     Active Substance: FLUOCINOLONE ACETONIDE
     Route: 061
     Dates: start: 20190315, end: 20190404

REACTIONS (1)
  - Herpes simplex [Recovered/Resolved]

NARRATIVE: CASE EVENT DATE: 20190317
